FAERS Safety Report 9457975 (Version 1)
Quarter: 2013Q3

REPORT INFORMATION
  Report Type: Spontaneous
  Country: US (occurrence: None)
  Receive Date: 20130812
  Receipt Date: 20130812
  Transmission Date: 20140515
  Serious: Yes (Hospitalization)
  Sender: FDA-Public Use
  Company Number: None

PATIENT
  Age: 66 Year
  Sex: Male
  Weight: 112.3 kg

DRUGS (1)
  1. MORPHINE [Suspect]
     Dates: start: 20130204, end: 20130206

REACTIONS (2)
  - Lethargy [None]
  - Bradypnoea [None]
